FAERS Safety Report 6557199-0 (Version None)
Quarter: 2010Q1

REPORT INFORMATION
  Report Type: 
  Country: None (occurrence: None)
  Receive Date: 20100127
  Receipt Date: 20100127
  Transmission Date: 20100710
  Serious: Yes (Life-Threatening)
  Sender: FDA-Public Use
  Company Number: None

PATIENT
  Age: 63 Year
  Sex: Female
  Weight: 58.9676 kg

DRUGS (2)
  1. OMPRAZOLE 20 MG DEXCEL [Suspect]
     Indication: GASTROOESOPHAGEAL REFLUX DISEASE
     Dosage: PRILOSEC 1 DAILY ORAL
     Route: 048
     Dates: start: 20080901, end: 20090320
  2. PREVACID [Suspect]
     Indication: DYSPEPSIA
     Dosage: PREVACID 1 DAILY ORAL
     Route: 048
     Dates: start: 20090321, end: 20090323

REACTIONS (8)
  - CHEST PAIN [None]
  - CONVULSION [None]
  - GASTROINTESTINAL HYPOMOTILITY [None]
  - GASTROINTESTINAL MOTILITY DISORDER [None]
  - HYPERTENSION [None]
  - INSOMNIA [None]
  - PALPITATIONS [None]
  - REBOUND EFFECT [None]
